FAERS Safety Report 10466017 (Version 1)
Quarter: 2014Q3

REPORT INFORMATION
  Report Type: Spontaneous
  Country: US (occurrence: US)
  Receive Date: 20140922
  Receipt Date: 20140922
  Transmission Date: 20150326
  Serious: No
  Sender: FDA-Public Use
  Company Number: US-009507513-1409USA003923

PATIENT
  Sex: Female

DRUGS (1)
  1. DULERA [Suspect]
     Active Substance: FORMOTEROL FUMARATE DIHYDRATE\MOMETASONE FUROATE
     Dosage: 200 MICROGRAM, TWO PUFFS TWICE DAILY
     Route: 055
     Dates: start: 2013

REACTIONS (3)
  - Product taste abnormal [Unknown]
  - No adverse event [Unknown]
  - Product container issue [Unknown]
